FAERS Safety Report 10954204 (Version 1)
Quarter: 2015Q1

REPORT INFORMATION
  Report Type: Spontaneous
  Country: US (occurrence: US)
  Receive Date: 20150325
  Receipt Date: 20150325
  Transmission Date: 20150721
  Serious: Yes (Life-Threatening, Hospitalization)
  Sender: FDA-Public Use
  Company Number: US-BAYER-2015-042345

PATIENT
  Age: 20 Year
  Sex: Male

DRUGS (3)
  1. VICKS NYQUIL [Interacting]
     Active Substance: ACETAMINOPHEN\DEXTROMETHORPHAN HYDROBROMIDE\DOXYLAMINE SUCCINATE
     Indication: VIRAL INFECTION
  2. DIPHENHYDRAMINE HYDROCHLORIDE. [Suspect]
     Active Substance: DIPHENHYDRAMINE HYDROCHLORIDE
     Indication: SLEEP DISORDER THERAPY
  3. DOXYLAMINE [Interacting]
     Active Substance: DOXYLAMINE
     Indication: VIRAL INFECTION

REACTIONS (10)
  - Toxicity to various agents [None]
  - Electrocardiogram QT prolonged [None]
  - Urinary incontinence [None]
  - Delirium [Recovered/Resolved]
  - Drug interaction [None]
  - Sinus tachycardia [None]
  - Blood glucose decreased [None]
  - Tongue disorder [None]
  - Extra dose administered [None]
  - Hypertension [None]
